FAERS Safety Report 6688973-8 (Version None)
Quarter: 2010Q2

REPORT INFORMATION
  Report Type: 
  Country: None (occurrence: None)
  Receive Date: 20100420
  Receipt Date: 20100408
  Transmission Date: 20101027
  Serious: Yes (Death, Other)
  Sender: FDA-Public Use
  Company Number: HR-PFIZER INC-2010037183

PATIENT
  Age: 39 Year
  Sex: Male

DRUGS (9)
  1. SOLU-MEDROL [Suspect]
     Indication: CONNECTIVE TISSUE DISORDER
     Dosage: 40 MG, 1X/DAY
     Route: 042
     Dates: start: 20090113, end: 20090115
  2. SOLU-MEDROL [Suspect]
     Indication: LYMPHOPROLIFERATIVE DISORDER
     Dosage: 40 MG, 2X/DAY
     Route: 042
     Dates: start: 20090115, end: 20090118
  3. SOLU-MEDROL [Suspect]
     Dosage: 500 MG, DAILY
     Route: 042
     Dates: start: 20090119, end: 20090124
  4. SOLU-MEDROL [Suspect]
     Dosage: 250 MG, DAILY
     Route: 042
     Dates: start: 20090125, end: 20090127
  5. SOLU-MEDROL [Suspect]
     Dosage: 200 MG, DAILY
     Dates: start: 20090127, end: 20090205
  6. AMPICILLIN SODIUM/SULBACTAM SODIUM [Suspect]
     Dosage: UNK
     Dates: start: 20090201
  7. FLUCONAZOLE [Suspect]
     Dosage: UNK
     Dates: start: 20090127, end: 20090204
  8. MEROPENEM [Suspect]
     Dosage: UNK
     Dates: start: 20090201
  9. VANCOMYCIN [Suspect]
     Dosage: UNK
     Dates: start: 20090201

REACTIONS (9)
  - BRONCHOPNEUMONIA [None]
  - CARDIAC ARREST [None]
  - DISSEMINATED INTRAVASCULAR COAGULATION [None]
  - HEPATIC STEATOSIS [None]
  - LYMPHADENOPATHY [None]
  - RENAL FAILURE ACUTE [None]
  - SEPSIS [None]
  - SEPTIC SHOCK [None]
  - TOXIC EPIDERMAL NECROLYSIS [None]
